FAERS Safety Report 20927991 (Version 1)
Quarter: 2022Q2

REPORT INFORMATION
  Report Type: Spontaneous
  Country: US (occurrence: US)
  Receive Date: 20220607
  Receipt Date: 20220607
  Transmission Date: 20220721
  Serious: No
  Sender: FDA-Public Use
  Company Number: US-PERRIGO-22US000127

PATIENT
  Age: 25 Year
  Sex: Male
  Weight: 65.76 kg

DRUGS (2)
  1. MINOXIDIL [Suspect]
     Active Substance: MINOXIDIL
     Indication: Alopecia
     Dosage: UNKNOWN, BID
     Route: 061
     Dates: start: 202104, end: 202110
  2. MINOXIDIL [Suspect]
     Active Substance: MINOXIDIL
     Dosage: UNKNOWN, QD
     Route: 061
     Dates: start: 202110, end: 202110

REACTIONS (6)
  - Application site burn [Recovered/Resolved]
  - Dandruff [Recovered/Resolved]
  - Application site dryness [Recovered/Resolved]
  - Incorrect dose administered [Recovered/Resolved]
  - Inappropriate schedule of product administration [Recovered/Resolved]
  - Wrong technique in product usage process [Recovered/Resolved]

NARRATIVE: CASE EVENT DATE: 20210401
